FAERS Safety Report 6836789-1 (Version None)
Quarter: 2010Q3

REPORT INFORMATION
  Report Type: 
  Country: None (occurrence: None)
  Receive Date: 20100708
  Receipt Date: 20100621
  Transmission Date: 20110219
  Serious: Yes (Death, Hospitalization)
  Sender: FDA-Public Use
  Company Number: 2010AL000111

PATIENT
  Age: 83 Year
  Sex: Female
  Weight: 60.5 kg

DRUGS (3)
  1. FOLOTYN [Suspect]
     Indication: MYCOSIS FUNGOIDES
     Dosage: 15 MG/M**2; 1X; IV
     Route: 042
     Dates: start: 20100503, end: 20100503
  2. VASOPRESSIN [Concomitant]
  3. PANTOPRAZOLE [Concomitant]

REACTIONS (33)
  - BRADYCARDIA [None]
  - COAGULOPATHY [None]
  - CORYNEBACTERIUM TEST POSITIVE [None]
  - DEHYDRATION [None]
  - DIARRHOEA [None]
  - ERYTHEMA [None]
  - EXCORIATION [None]
  - HAEMATOCRIT DECREASED [None]
  - HAEMOGLOBIN DECREASED [None]
  - HYPERGLYCAEMIA [None]
  - HYPERPHOSPHATAEMIA [None]
  - HYPOCALCAEMIA [None]
  - HYPOPHOSPHATAEMIA [None]
  - METABOLIC ACIDOSIS [None]
  - MUCOSAL INFLAMMATION [None]
  - NAUSEA [None]
  - OLIGURIA [None]
  - PANCYTOPENIA [None]
  - PNEUMONIA [None]
  - PSEUDOMONAS TEST POSITIVE [None]
  - RED BLOOD CELL COUNT DECREASED [None]
  - RENAL FAILURE ACUTE [None]
  - RENAL TUBULAR NECROSIS [None]
  - RESPIRATORY FAILURE [None]
  - SEPTIC SHOCK [None]
  - SKIN BURNING SENSATION [None]
  - SKIN EXFOLIATION [None]
  - SKIN NECROSIS [None]
  - STAPHYLOCOCCUS TEST POSITIVE [None]
  - ULCER [None]
  - VOMITING [None]
  - WHITE BLOOD CELL COUNT DECREASED [None]
  - WOUND INFECTION BACTERIAL [None]
